FAERS Safety Report 21958184 (Version 1)
Quarter: 2023Q1

REPORT INFORMATION
  Report Type: Spontaneous
  Country: US (occurrence: US)
  Receive Date: 20230206
  Receipt Date: 20230206
  Transmission Date: 20230417
  Serious: No
  Sender: FDA-Public Use
  Company Number: US-PFIZER INC-PV202300022702

PATIENT
  Age: 71 Year
  Sex: Female
  Weight: 42.177 kg

DRUGS (1)
  1. ACCUPRIL [Suspect]
     Active Substance: QUINAPRIL HYDROCHLORIDE
     Dosage: UNK

REACTIONS (3)
  - Cough [Unknown]
  - Odynophagia [Unknown]
  - Oropharyngeal pain [Unknown]
